FAERS Safety Report 9378250 (Version 3)
Quarter: 2013Q3

REPORT INFORMATION
  Report Type: Spontaneous
  Country: US (occurrence: US)
  Receive Date: 20130701
  Receipt Date: 20130820
  Transmission Date: 20140515
  Serious: Yes (Other)
  Sender: FDA-Public Use
  Company Number: US-BAYER-2013-077757

PATIENT
  Age: 58 Year
  Sex: Female
  Weight: 77.1 kg

DRUGS (4)
  1. PHILLIPS^ MILK OF MAGNESIA [Suspect]
     Indication: CONSTIPATION
     Dosage: 1 TBSP, UNK
     Route: 048
     Dates: start: 2007, end: 201305
  2. PHILLIPS^ MILK OF MAGNESIA [Suspect]
     Indication: BOWEL PREPARATION
  3. PHILLIPS^ CHEWABLE TABLETS MINT [Suspect]
     Indication: CONSTIPATION
     Dosage: 8 DF, UNK
     Route: 048
     Dates: start: 2009, end: 2009
  4. PHILLIPS LITTLE PHILLIPS FRESH STRAWBERRY [Suspect]
     Indication: CONSTIPATION
     Dosage: 4 TBSP, UNK
     Route: 048
     Dates: start: 201305

REACTIONS (6)
  - Drug dependence [None]
  - Drug ineffective [None]
  - Drug ineffective [None]
  - Off label use [None]
  - Extra dose administered [None]
  - Product physical issue [None]
